FAERS Safety Report 8068415-0 (Version None)
Quarter: 2012Q1

REPORT INFORMATION
  Report Type: 
  Country: None (occurrence: None)
  Receive Date: 20120124
  Receipt Date: 20111021
  Transmission Date: 20120608
  Serious: No
  Sender: FDA-Public Use
  Company Number: US-AMGEN-USASP2011054568

PATIENT
  Sex: Female

DRUGS (3)
  1. PROLIA [Suspect]
  2. PROLIA [Suspect]
  3. PROLIA [Suspect]
     Indication: OSTEOPOROSIS
     Dosage: 60 MG, Q6MO
     Dates: start: 20110101, end: 20110101

REACTIONS (1)
  - ARTHRALGIA [None]
